FAERS Safety Report 13376846 (Version 1)
Quarter: 2017Q1

REPORT INFORMATION
  Report Type: Spontaneous
  Country: US (occurrence: US)
  Receive Date: 20170328
  Receipt Date: 20170328
  Transmission Date: 20170429
  Serious: Yes (Other)
  Sender: FDA-Public Use
  Company Number: None

PATIENT
  Age: 72 Year
  Sex: Male
  Weight: 94.5 kg

DRUGS (19)
  1. BABY ASPIRIN [Concomitant]
     Active Substance: ASPIRIN
  2. TAMSULOSIN [Concomitant]
     Active Substance: TAMSULOSIN
  3. TUMERIC [Concomitant]
     Active Substance: TURMERIC
  4. PSYLLIUM HUSK [Concomitant]
     Active Substance: PSYLLIUM HUSK
  5. CINNAMON. [Concomitant]
     Active Substance: CINNAMON
  6. REPATHA [Suspect]
     Active Substance: EVOLOCUMAB
     Indication: BLOOD CHOLESTEROL INCREASED
  7. COQ10 [Concomitant]
     Active Substance: UBIDECARENONE
  8. C [Concomitant]
  9. PROSCAR [Concomitant]
     Active Substance: FINASTERIDE
  10. DHEA [Concomitant]
     Active Substance: PRASTERONE
  11. METFORMIN [Concomitant]
     Active Substance: METFORMIN HYDROCHLORIDE
  12. PROBIOTIC [Concomitant]
     Active Substance: PROBIOTICS NOS
  13. VITAMIN D3 [Concomitant]
     Active Substance: CHOLECALCIFEROL
  14. BRAIN [Concomitant]
  15. FISH OIL [Concomitant]
     Active Substance: FISH OIL
  16. FORMULA [Concomitant]
  17. COLOSTRUM HUMAN [Concomitant]
     Active Substance: HUMAN COLOSTRUM
  18. B [Concomitant]
  19. TMG [Concomitant]

REACTIONS (3)
  - Mobility decreased [None]
  - Back pain [None]
  - Asthenia [None]

NARRATIVE: CASE EVENT DATE: 20161001
